FAERS Safety Report 5682203-1 (Version None)
Quarter: 2008Q1

REPORT INFORMATION
  Report Type: 
  Country: None (occurrence: None)
  Receive Date: 20080327
  Receipt Date: 20080318
  Transmission Date: 20080703
  Serious: Yes (Other)
  Sender: FDA-Public Use
  Company Number: US-KINGPHARMUSA00001-K200800341

PATIENT

DRUGS (6)
  1. ALTACE [Suspect]
     Dosage: 1 U, QD
     Route: 048
     Dates: start: 20070101, end: 20080201
  2. HYDROCHLOROTHIAZIDE [Suspect]
     Dosage: 1 U, QD
     Route: 048
     Dates: start: 20070101, end: 20080201
  3. ENOXAPARIN SODIUM [Suspect]
     Indication: DEEP VEIN THROMBOSIS
     Dosage: 1 U, QD
     Route: 058
     Dates: start: 20071115, end: 20080201
  4. CIPROXIN /00697201/ [Suspect]
     Dosage: UNK, UNK
     Route: 042
     Dates: start: 20071101, end: 20071130
  5. COUMADIN [Concomitant]
     Route: 048
     Dates: start: 20071225, end: 20080121
  6. EUTIROX  /00068001/ [Concomitant]
     Route: 048
     Dates: start: 20071130, end: 20080305

REACTIONS (1)
  - HENOCH-SCHONLEIN PURPURA [None]
